FAERS Safety Report 6529749-1 (Version None)
Quarter: 2010Q1

REPORT INFORMATION
  Report Type: 
  Country: None (occurrence: None)
  Receive Date: 20100104
  Receipt Date: 20091224
  Transmission Date: 20100710
  Serious: Yes (Death, Disabling, Other)
  Sender: FDA-Public Use
  Company Number: 2008-03499

PATIENT
  Age: 64 Year
  Sex: Female
  Weight: 48 kg

DRUGS (3)
  1. VELCADE [Suspect]
     Indication: MULTIPLE MYELOMA
     Dosage: 1.4 MG, UNK, INTRAVENOUS
     Route: 042
     Dates: start: 20080624, end: 20080704
  2. DECADRON [Concomitant]
  3. ACYCLOVIR       /00587301/ (ACICLOVIR) [Concomitant]

REACTIONS (12)
  - BLOOD CULTURE POSITIVE [None]
  - BONE MARROW FAILURE [None]
  - BRONCHOPULMONARY ASPERGILLOSIS [None]
  - CYTOMEGALOVIRUS TEST POSITIVE [None]
  - HYPOAESTHESIA [None]
  - LUNG DISORDER [None]
  - MULTIPLE SCLEROSIS RELAPSE [None]
  - MYELOPATHY [None]
  - NEUTROPENIA [None]
  - PERIPHERAL SENSORIMOTOR NEUROPATHY [None]
  - QUADRIPLEGIA [None]
  - STAPHYLOCOCCAL INFECTION [None]
